FAERS Safety Report 19353391 (Version 1)
Quarter: 2021Q2

REPORT INFORMATION
  Report Type: Spontaneous
  Country: US (occurrence: US)
  Receive Date: 20210531
  Receipt Date: 20210531
  Transmission Date: 20210717
  Serious: No
  Sender: FDA-Public Use
  Company Number: US-PURDUE-USA-2020-0151865

PATIENT
  Age: 56 Year
  Sex: Female

DRUGS (3)
  1. OXYCODONE/ ACETAMINOPHEN TABLETS [Suspect]
     Active Substance: ACETAMINOPHEN\OXYCODONE HYDROCHLORIDE
     Indication: PRODUCT USED FOR UNKNOWN INDICATION
     Dosage: 7.5/325 MG BID
     Route: 048
     Dates: start: 20200309
  2. OXYCONTIN [Suspect]
     Active Substance: OXYCODONE HYDROCHLORIDE
     Indication: PRODUCT USED FOR UNKNOWN INDICATION
     Dosage: UNKNOWN
     Route: 048
  3. HYDROCODONE BITARTRATE (SIMILAR TO NDA 206627) [Suspect]
     Active Substance: HYDROCODONE BITARTRATE
     Indication: PRODUCT USED FOR UNKNOWN INDICATION
     Dosage: UNKNOWN
     Route: 048
     Dates: end: 20200309

REACTIONS (8)
  - Visual impairment [Unknown]
  - Illness [Unknown]
  - Urticaria [Unknown]
  - Abdominal pain upper [Unknown]
  - Headache [Unknown]
  - Nervousness [Unknown]
  - Dizziness [Unknown]
  - Anxiety [Unknown]

NARRATIVE: CASE EVENT DATE: 20200309
